FAERS Safety Report 6062685-6 (Version None)
Quarter: 2009Q1

REPORT INFORMATION
  Report Type: 
  Country: None (occurrence: None)
  Receive Date: 20090203
  Receipt Date: 20090126
  Transmission Date: 20090719
  Serious: Yes (Hospitalization)
  Sender: FDA-Public Use
  Company Number: US-KINGPHARMUSA00001-K200900080

PATIENT
  Age: 73 Year
  Sex: Male

DRUGS (6)
  1. ALTACE [Suspect]
     Dosage: 2.5 MG, BID
     Route: 048
     Dates: start: 20070101, end: 20080725
  2. TAHOR [Suspect]
     Dosage: UNK, UNK
     Route: 048
     Dates: start: 20051201
  3. ISOPTIN [Concomitant]
     Dosage: UNK, UNK
     Route: 048
     Dates: start: 20051201
  4. PLAVIX [Concomitant]
     Dosage: 75 MG, QD
     Route: 048
     Dates: start: 20050701
  5. VENTOLIN [Concomitant]
  6. ATROVENT [Concomitant]

REACTIONS (8)
  - BRONCHIAL IRRITATION [None]
  - COUGH [None]
  - EOSINOPHILIC PNEUMONIA [None]
  - GENERAL PHYSICAL HEALTH DETERIORATION [None]
  - INFLAMMATION [None]
  - PRODUCTIVE COUGH [None]
  - PULMONARY CONGESTION [None]
  - PYREXIA [None]
